FAERS Safety Report 8020000-2 (Version None)
Quarter: 2012Q1

REPORT INFORMATION
  Report Type: 
  Country: None (occurrence: None)
  Receive Date: 20120103
  Receipt Date: 20111220
  Transmission Date: 20120608
  Serious: Yes (Hospitalization, Disabling, Other)
  Sender: FDA-Public Use
  Company Number: GB-MYLANLABS-2011S1022661

PATIENT
  Age: 81 Year
  Sex: Female

DRUGS (6)
  1. GALANTAMINE HYDROBROMIDE [Concomitant]
     Indication: DEMENTIA
  2. SIMVASTATIN [Concomitant]
     Indication: BLOOD CHOLESTEROL INCREASED
  3. FLUCONAZOLE [Suspect]
     Indication: VULVOVAGINAL CANDIDIASIS
     Route: 048
     Dates: start: 20111014, end: 20111016
  4. CITALOPRAM [Concomitant]
     Indication: DEPRESSION
  5. LEVOTHYROXINE SODIUM [Concomitant]
     Indication: HYPOTHYROIDISM
  6. FLUCONAZOLE [Suspect]
     Indication: ANAL CANDIDIASIS
     Route: 048
     Dates: start: 20111014, end: 20111016

REACTIONS (3)
  - DEHYDRATION [None]
  - RENAL FAILURE [None]
  - ACUTE GENERALISED EXANTHEMATOUS PUSTULOSIS [None]
